FAERS Safety Report 8811052 (Version 1)
Quarter: 2012Q4

REPORT INFORMATION
  Report Type: Spontaneous
  Country: US (occurrence: None)
  Receive Date: 20120925
  Receipt Date: 20120925
  Transmission Date: 20130627
  Serious: Yes (Disabling)
  Sender: FDA-Public Use
  Company Number: None

PATIENT
  Sex: Male
  Weight: 54.43 kg

DRUGS (1)
  1. JALYN [Suspect]
     Indication: BPH
     Dosage: 1 capsule at bedtime oral
     Route: 048
     Dates: start: 20120321, end: 20120803

REACTIONS (2)
  - Erectile dysfunction [None]
  - Gynaecomastia [None]
